FAERS Safety Report 8103855-2 (Version None)
Quarter: 2012Q1

REPORT INFORMATION
  Report Type: 
  Country: None (occurrence: None)
  Receive Date: 20120201
  Receipt Date: 20120119
  Transmission Date: 20120608
  Serious: Yes (Death, Life-Threatening, Other)
  Sender: FDA-Public Use
  Company Number: FR-CELGENEUS-056-21880-11040600

PATIENT
  Sex: Male

DRUGS (5)
  1. BORTEZOMIB [Suspect]
     Route: 041
     Dates: start: 20110314, end: 20110324
  2. BORTEZOMIB [Suspect]
     Route: 041
     Dates: start: 20110412
  3. DEXAMETHASONE [Suspect]
     Route: 065
     Dates: start: 20110412
  4. DEXAMETHASONE [Suspect]
     Route: 065
     Dates: start: 20110314, end: 20110325
  5. REVLIMID [Suspect]
     Dosage: 25 MILLIGRAM
     Route: 048
     Dates: start: 20110315, end: 20110327

REACTIONS (2)
  - MYOCARDIAL INFARCTION [None]
  - DEEP VEIN THROMBOSIS [None]
